FAERS Safety Report 21279026 (Version 4)
Quarter: 2022Q4

REPORT INFORMATION
  Report Type: Report from Study
  Country: US (occurrence: US)
  Receive Date: 20220901
  Receipt Date: 20221024
  Transmission Date: 20230113
  Serious: Yes (Other)
  Sender: FDA-Public Use
  Company Number: US-UCBSA-2022051124

PATIENT
  Sex: Female
  Weight: 89 kg

DRUGS (1)
  1. CERTOLIZUMAB PEGOL [Suspect]
     Active Substance: CERTOLIZUMAB PEGOL
     Indication: Rheumatoid arthritis
     Dosage: 200 MILLIGRAM, EV 2 WEEKS(QOW)
     Dates: start: 20220101, end: 2022

REACTIONS (4)
  - Diverticulitis [Unknown]
  - Colostomy [Unknown]
  - Therapy interrupted [Unknown]
  - Stoma complication [Recovering/Resolving]

NARRATIVE: CASE EVENT DATE: 20220101
